FAERS Safety Report 11918455 (Version 3)
Quarter: 2016Q1

REPORT INFORMATION
  Report Type: Spontaneous
  Country: US (occurrence: US)
  Receive Date: 20160115
  Receipt Date: 20160208
  Transmission Date: 20160526
  Serious: Yes (Other)
  Sender: FDA-Public Use
  Company Number: US-PFIZER INC-2016009376

PATIENT
  Sex: Female

DRUGS (1)
  1. CADUET [Suspect]
     Active Substance: AMLODIPINE BESYLATE\ATORVASTATIN CALCIUM
     Indication: RENAL DISORDER
     Dosage: UNK (AMLODIPINE BESILATE 10, ATORVASTATIN CALCIUM 10)

REACTIONS (4)
  - Pain [Unknown]
  - Influenza [Unknown]
  - Pneumonia [Unknown]
  - Ear infection [Unknown]
